FAERS Safety Report 4470012-0 (Version None)
Quarter: 2004Q3

REPORT INFORMATION
  Report Type: 
  Country: None (occurrence: None)
  Receive Date: 20040920
  Receipt Date: 20040601
  Transmission Date: 20050211
  Serious: No
  Sender: FDA-Public Use
  Company Number: PHEH2004US06022

PATIENT
  Age: 75 Year
  Sex: Male
  Weight: 98 kg

DRUGS (8)
  1. ZOMETA [Suspect]
     Indication: METASTASES TO BONE
     Dosage: 4 MG EVERY 4 WEEKS, INTRAVENOUS
     Route: 042
     Dates: start: 20040525
  2. LUPRON [Concomitant]
  3. ALLOPURINOL [Concomitant]
  4. DETROL [Concomitant]
  5. INDAPAMIDE [Concomitant]
  6. MECLIZINE [Concomitant]
  7. METOPROLOL SUCCINATE [Concomitant]
  8. VICODIN [Concomitant]

REACTIONS (3)
  - BLISTER [None]
  - HERPES ZOSTER [None]
  - PAIN [None]
